FAERS Safety Report 8287141-6 (Version None)
Quarter: 2012Q2

REPORT INFORMATION
  Report Type: 
  Country: None (occurrence: None)
  Receive Date: 20120416
  Receipt Date: 20120405
  Transmission Date: 20120825
  Serious: Yes (Hospitalization)
  Sender: FDA-Public Use
  Company Number: JP-ASTRAZENECA-2012SE07857

PATIENT
  Age: 87 Year
  Sex: Male
  Weight: 56 kg

DRUGS (4)
  1. MAGNESIUM SULFATE [Concomitant]
     Route: 048
  2. ADALAT CC [Concomitant]
     Route: 048
  3. CASODEX [Suspect]
     Indication: PROSTATE CANCER
     Route: 048
     Dates: start: 20120112, end: 20120201
  4. GASMOTIN [Concomitant]
     Route: 048

REACTIONS (2)
  - LIVER DISORDER [None]
  - PLATELET COUNT DECREASED [None]
